FAERS Safety Report 9401924 (Version 3)
Quarter: 2013Q4

REPORT INFORMATION
  Report Type: Spontaneous
  Country: US (occurrence: US)
  Receive Date: 20130716
  Receipt Date: 20131008
  Transmission Date: 20140711
  Serious: No
  Sender: FDA-Public Use
  Company Number: US-PFIZER INC-2013206542

PATIENT
  Age: 57 Year
  Sex: Female
  Weight: 68 kg

DRUGS (11)
  1. CADUET [Suspect]
     Indication: HYPERTENSION
     Dosage: 10 MG/ 10 MG/ 1X/DAY
     Dates: end: 20130709
  2. CADUET [Suspect]
     Indication: BLOOD CHOLESTEROL ABNORMAL
  3. CADUET [Suspect]
     Indication: BLOOD CHOLESTEROL INCREASED
  4. AMLODIPINE\ATORVASTATIN [Suspect]
     Indication: HYPERTENSION
     Dosage: 10 MG /10 MG, 1X/DAY
     Dates: start: 201307
  5. AMLODIPINE\ATORVASTATIN [Suspect]
     Indication: BLOOD CHOLESTEROL ABNORMAL
  6. AMLODIPINE\ATORVASTATIN [Suspect]
     Indication: BLOOD CHOLESTEROL INCREASED
  7. FOSAMAX [Concomitant]
     Indication: OSTEOARTHRITIS
     Dosage: UNK, WEEKLY
  8. FOSAMAX [Concomitant]
     Indication: OSTEOPOROSIS
  9. SYNTHROID [Concomitant]
     Indication: THYROIDECTOMY
     Dosage: 100 UG, 1X/DAY, MONDAY TO SATURDAY
  10. SYNTHROID [Concomitant]
     Indication: THYROID DISORDER
     Dosage: 50 UG, WEEKLY ON SUNDAY
  11. COZAAR [Concomitant]
     Indication: HYPERTENSION
     Dosage: UNK

REACTIONS (1)
  - Headache [Recovered/Resolved]
